FAERS Safety Report 8314569-8 (Version None)
Quarter: 2012Q2

REPORT INFORMATION
  Report Type: 
  Country: None (occurrence: None)
  Receive Date: 20120426
  Receipt Date: 20120418
  Transmission Date: 20120825
  Serious: Yes (Life-Threatening, Hospitalization)
  Sender: FDA-Public Use
  Company Number: US-US-EMD SERONO, INC.-7119457

PATIENT
  Age: 39 Year
  Sex: Female

DRUGS (2)
  1. CHORIOGONADOTROPIN ALFA [Suspect]
     Indication: INFERTILITY
  2. CLOMIPHENE CITRATE [Suspect]
     Indication: INFERTILITY

REACTIONS (1)
  - CORONARY ARTERY DISSECTION [None]
